FAERS Safety Report 5968541-3 (Version None)
Quarter: 2008Q4

REPORT INFORMATION
  Report Type: 
  Country: None (occurrence: None)
  Receive Date: 20081126
  Receipt Date: 20081119
  Transmission Date: 20090506
  Serious: Yes (Death, Life-Threatening, Hospitalization)
  Sender: FDA-Public Use
  Company Number: US-ABBOTT-08P-163-0474341-07

PATIENT
  Sex: Female

DRUGS (15)
  1. HUMIRA [Suspect]
     Indication: RHEUMATOID ARTHRITIS
     Route: 058
     Dates: start: 20010104, end: 20080717
  2. ATENOLOL [Concomitant]
     Indication: HYPERTENSION
     Route: 048
     Dates: start: 19900101
  3. SIMVASTATIN [Concomitant]
     Indication: HYPERCHOLESTEROLAEMIA
     Route: 048
     Dates: start: 19900101
  4. VENLAFAXINE HYDROCHLORIDE [Concomitant]
     Indication: DEPRESSION
     Route: 048
     Dates: start: 20031007
  5. CALCIUM-SANDOZ [Concomitant]
     Indication: MINERAL SUPPLEMENTATION
     Route: 048
     Dates: start: 20020810
  6. DIPHENHYDRAMINE HYDROCHLORIDE [Concomitant]
     Indication: PRURITUS
     Route: 048
     Dates: start: 20031008, end: 20031215
  7. LOSARTAN POTASSIUM [Concomitant]
     Indication: HYPERTENSION
     Route: 048
     Dates: start: 20020220
  8. MIRLAX [Concomitant]
     Indication: CONSTIPATION
     Dosage: 1 TABLESPOON
     Route: 048
     Dates: start: 20050825
  9. FENTANYL TRANSDERMAL SYSTEM [Concomitant]
     Indication: BACK PAIN
     Route: 062
     Dates: start: 20060616
  10. PEGAPTANIB SODIUM [Concomitant]
     Indication: MACULAR DEGENERATION
     Dates: start: 20070604
  11. VICODIN [Concomitant]
     Indication: ARTHRALGIA
     Route: 048
     Dates: start: 20080110
  12. ZOLEDRONIC ACID [Concomitant]
     Indication: OSTEOPOROSIS
     Dates: start: 20080519
  13. PIOGLITAZONE [Concomitant]
     Indication: DIABETES MELLITUS
     Route: 048
     Dates: start: 20040611
  14. CELECOXIB [Concomitant]
     Indication: RHEUMATOID ARTHRITIS
     Route: 048
     Dates: start: 19990205
  15. PREDNISONE TAB [Concomitant]
     Indication: RHEUMATOID ARTHRITIS
     Route: 048
     Dates: start: 20070801

REACTIONS (28)
  - ADRENAL INSUFFICIENCY [None]
  - AORTIC VALVE SCLEROSIS [None]
  - ASTHENIA [None]
  - ATELECTASIS [None]
  - ATRIAL FIBRILLATION [None]
  - BRADYCARDIA [None]
  - CELLULITIS [None]
  - ESCHERICHIA INFECTION [None]
  - FALL [None]
  - GENERAL PHYSICAL HEALTH DETERIORATION [None]
  - HAEMODYNAMIC INSTABILITY [None]
  - HYPOKINESIA [None]
  - HYPOTENSION [None]
  - INFLAMMATION [None]
  - KLEBSIELLA INFECTION [None]
  - MENINGITIS [None]
  - METABOLIC DISORDER [None]
  - MITRAL VALVE INCOMPETENCE [None]
  - MYOCARDIAL INFARCTION [None]
  - OPPORTUNISTIC INFECTION [None]
  - PNEUMONIA [None]
  - PULMONARY HYPERTENSION [None]
  - PULMONARY OEDEMA [None]
  - RENAL FAILURE ACUTE [None]
  - RESPIRATORY FAILURE [None]
  - SEPSIS [None]
  - SEPTIC SHOCK [None]
  - URINARY TRACT INFECTION [None]
